FAERS Safety Report 24897746 (Version 1)
Quarter: 2025Q1

REPORT INFORMATION
  Report Type: Spontaneous
  Country: US (occurrence: US)
  Receive Date: 20250129
  Receipt Date: 20250129
  Transmission Date: 20250408
  Serious: No
  Sender: ROCHE
  Company Number: US-ROCHE-10000184957

PATIENT
  Sex: Male

DRUGS (16)
  1. ERIVEDGE [Suspect]
     Active Substance: VISMODEGIB
     Indication: Basal cell carcinoma
     Dosage: TAKE 1 WHOLE CAPSULE BY MOUTH DAILY WITH WATER, WITH OR WITHOUT FOOD.
     Route: 048
  2. ASPIRIN CHE [Concomitant]
  3. COENZYME Q10 [Concomitant]
     Active Substance: DIETARY SUPPLEMENT\UBIDECARENONE
  4. FERROUS SULFATE [Concomitant]
     Active Substance: FERROUS SULFATE
  5. FINASTERIDE [Concomitant]
     Active Substance: FINASTERIDE
  6. METFORMIN HYDROCHLORIDE [Concomitant]
     Active Substance: METFORMIN HYDROCHLORIDE
  7. MULTIVITAMIN LIQ [Concomitant]
  8. ROSUVASTATIN [Concomitant]
     Active Substance: ROSUVASTATIN
  9. TAMSULOSIN [Concomitant]
     Active Substance: TAMSULOSIN
  10. VITAMIN B12 [Concomitant]
     Active Substance: CYANOCOBALAMIN
  11. VITAMIN C CHE [Concomitant]
  12. VITAMIN D3 [Concomitant]
     Active Substance: CHOLECALCIFEROL
  13. ZYRTEC ALLER [Concomitant]
  14. FISH OIL OME [Concomitant]
  15. LISINOPRIL [Concomitant]
     Active Substance: LISINOPRIL
  16. ONDANSETRON TBD [Concomitant]

REACTIONS (1)
  - Cellulitis [Unknown]
